FAERS Safety Report 9221799 (Version 1)
Quarter: 2013Q2

REPORT INFORMATION
  Report Type: Spontaneous
  Country: GB (occurrence: GB)
  Receive Date: 20130410
  Receipt Date: 20130410
  Transmission Date: 20140414
  Serious: Yes (Death)
  Sender: FDA-Public Use
  Company Number: GB-TEVA-396323ISR

PATIENT
  Age: 60 Year
  Sex: Male

DRUGS (3)
  1. CITALOPRAM [Suspect]
  2. ZOPICLONE [Concomitant]
  3. METHADONE [Concomitant]

REACTIONS (3)
  - Drug dependence [Fatal]
  - Myocardial fibrosis [Fatal]
  - Arrhythmia [Fatal]
